FAERS Safety Report 17894441 (Version 1)
Quarter: 2020Q2

REPORT INFORMATION
  Report Type: Report from Study
  Country: CO (occurrence: CO)
  Receive Date: 20200615
  Receipt Date: 20200615
  Transmission Date: 20200714
  Serious: Yes (Other)
  Sender: FDA-Public Use
  Company Number: CO-ROCHE-2617851

PATIENT
  Age: 61 Year
  Sex: Male

DRUGS (2)
  1. ALTEPLASE. [Suspect]
     Active Substance: ALTEPLASE
     Indication: BASILAR ARTERY OCCLUSION
     Route: 042
  2. ACETYLSALICYLIC ACID [Concomitant]
     Active Substance: ASPIRIN

REACTIONS (4)
  - Basilar artery occlusion [Unknown]
  - Cerebral infarction [Unknown]
  - Haemorrhagic transformation stroke [Unknown]
  - Basilar artery thrombosis [Unknown]
